FAERS Safety Report 7411267-X (Version None)
Quarter: 2011Q2

REPORT INFORMATION
  Report Type: 
  Country: None (occurrence: None)
  Receive Date: 20110413
  Receipt Date: 20100505
  Transmission Date: 20111010
  Serious: Yes (Death)
  Sender: FDA-Public Use
  Company Number: US-BRISTOL-MYERS SQUIBB COMPANY-15096225

PATIENT
  Age: 51 Year
  Sex: Male
  Weight: 85 kg

DRUGS (11)
  1. LEUCOVORIN [Suspect]
     Indication: COLON CANCER METASTATIC
     Dosage: ANOTHER ADMINISTRATION FROM 09OCT09-23OCT09.
     Dates: start: 20081205, end: 20081219
  2. MOXIFLOXACIN [Suspect]
     Route: 048
     Dates: start: 20091223, end: 20091223
  3. ERBITUX [Suspect]
     Indication: COLON CANCER METASTATIC
     Dates: start: 20090702, end: 20090716
  4. OXALIPLATIN [Suspect]
     Indication: COLON CANCER METASTATIC
     Dosage: ANOTHER ADMINISTRATION FROM 09OCT09-23OCT09.
     Dates: start: 20081205, end: 20081219
  5. AVASTIN [Suspect]
     Indication: COLON CANCER METASTATIC
     Dates: start: 20090102, end: 20090507
  6. IRINOTECAN HCL [Suspect]
     Indication: COLON CANCER METASTATIC
     Dates: start: 20090717, end: 20091001
  7. BEVACIZUMAB [Suspect]
     Indication: COLON CANCER METASTATIC
     Dates: start: 20091009, end: 20091023
  8. BEVACIZUMAB [Suspect]
     Dates: start: 20091009, end: 20091023
  9. BEVACIZUMAB [Suspect]
     Dates: start: 20091009, end: 20091023
  10. FLUOROURACIL [Suspect]
     Indication: COLON CANCER METASTATIC
     Dosage: ANOTHER ADMINISTRATION FROM 09OCT09-23OCT09.
     Dates: start: 20081205, end: 20081219
  11. BEVACIZUMAB [Suspect]
     Dates: start: 20091009, end: 20091023

REACTIONS (1)
  - NEOPLASM MALIGNANT [None]
